FAERS Safety Report 16461164 (Version 1)
Quarter: 2019Q2

REPORT INFORMATION
  Report Type: Spontaneous
  Country: US (occurrence: US)
  Receive Date: 20190620
  Receipt Date: 20190620
  Transmission Date: 20190711
  Serious: Yes (Death, Hospitalization, Other)
  Sender: FDA-Public Use
  Company Number: US-ALLERGAN-1925418US

PATIENT
  Sex: Female

DRUGS (14)
  1. HYDROMORPHONE [Suspect]
     Active Substance: HYDROMORPHONE
     Dosage: 0.5 MG, QD
     Route: 065
  2. HYDROMORPHONE [Suspect]
     Active Substance: HYDROMORPHONE
     Dosage: 2 MG, Q3HR, TOTALING THREE TO FOUR DOSES PER DAY
     Route: 048
  3. MORPHINE SULFATE. [Suspect]
     Active Substance: MORPHINE SULFATE
     Dosage: 30-45 MG, Q3HR, AS NEEDED
     Route: 048
  4. HYDROMORPHONE [Suspect]
     Active Substance: HYDROMORPHONE
     Indication: PROCEDURAL PAIN
     Dosage: 0.1 MG, Q6HR, TOTALING FOUR DOSES PER DAY
     Route: 065
  5. HYDROMORPHONE [Suspect]
     Active Substance: HYDROMORPHONE
     Dosage: 2 MG/ML
     Route: 065
  6. HYDROMORPHONE [Suspect]
     Active Substance: HYDROMORPHONE
     Dosage: UNK
     Route: 051
  7. BUPIVACAINE. [Suspect]
     Active Substance: BUPIVACAINE
     Indication: ANALGESIC THERAPY
     Dosage: 2.5 MG, QD
     Route: 065
  8. MORPHINE SULFATE UNK [Suspect]
     Active Substance: MORPHINE SULFATE
     Dosage: 120 MG, Q8HR
     Route: 048
  9. HYDROMORPHONE [Suspect]
     Active Substance: HYDROMORPHONE
     Dosage: 0.8 MG, QD
     Route: 065
  10. BUPIVACAINE. [Suspect]
     Active Substance: BUPIVACAINE
     Dosage: 10 MG/ML
     Route: 065
  11. MORPHINE SULFATE. [Suspect]
     Active Substance: MORPHINE SULFATE
     Indication: CANCER PAIN
     Dosage: INCREASED
     Route: 048
  12. HYDROMORPHONE [Suspect]
     Active Substance: HYDROMORPHONE
     Indication: CANCER PAIN
     Dosage: 1.4 MG, QD, WITH FOUR PTM BOLUSES OF 0.15MG/DOSE EVERY 6 H
     Route: 065
  13. MORPHINE SULFATE UNK [Suspect]
     Active Substance: MORPHINE SULFATE
     Indication: CANCER PAIN
     Dosage: INCREASED
     Route: 048
  14. FENTANYL. [Suspect]
     Active Substance: FENTANYL
     Indication: CANCER PAIN
     Dosage: UNK
     Route: 051

REACTIONS (20)
  - Restlessness [Unknown]
  - Discomfort [Unknown]
  - Neurotoxicity [Not Recovered/Not Resolved]
  - Delirium [Not Recovered/Not Resolved]
  - Dehydration [Unknown]
  - Confusional state [Unknown]
  - Myoclonus [Not Recovered/Not Resolved]
  - Pain [Recovering/Resolving]
  - Coagulopathy [Recovered/Resolved]
  - Renal impairment [Unknown]
  - General physical health deterioration [Unknown]
  - Thrombosis [Unknown]
  - Muscle contractions involuntary [Recovering/Resolving]
  - Malnutrition [Unknown]
  - Constipation [Unknown]
  - Death [Fatal]
  - Toxic encephalopathy [Recovering/Resolving]
  - Renal infarct [Unknown]
  - Insomnia [Unknown]
  - Drug ineffective [Unknown]
